FAERS Safety Report 18396787 (Version 1)
Quarter: 2020Q4

REPORT INFORMATION
  Report Type: Spontaneous
  Country: US (occurrence: US)
  Receive Date: 20201019
  Receipt Date: 20201019
  Transmission Date: 20210114
  Serious: No
  Sender: FDA-Public Use
  Company Number: US-GW PHARMA-202010USGW03502

PATIENT

DRUGS (2)
  1. TROMBONEX [Concomitant]
     Indication: PRODUCT USED FOR UNKNOWN INDICATION
     Dosage: UNK
     Route: 065
  2. EPIDIOLEX [Suspect]
     Active Substance: CANNABIDIOL
     Indication: LENNOX-GASTAUT SYNDROME
     Dosage: 500 MILLIGRAM, BID
     Route: 048
     Dates: start: 201903

REACTIONS (4)
  - Haemoglobin decreased [Not Recovered/Not Resolved]
  - Pallor [Not Recovered/Not Resolved]
  - Anaemia [Not Recovered/Not Resolved]
  - Haematocrit decreased [Not Recovered/Not Resolved]

NARRATIVE: CASE EVENT DATE: 2020
